FAERS Safety Report 7545763-1 (Version None)
Quarter: 2011Q2

REPORT INFORMATION
  Report Type: 
  Country: None (occurrence: None)
  Receive Date: 20110614
  Receipt Date: 20110606
  Transmission Date: 20111010
  Serious: Yes (Other)
  Sender: FDA-Public Use
  Company Number: ES-SANOFI-AVENTIS-2011SA035375

PATIENT
  Age: 77 Year
  Sex: Female

DRUGS (1)
  1. FEXOFENADINE HCL [Suspect]
     Indication: DERMATITIS
     Dosage: FORM CODE AS REPORTED- 82
     Route: 048
     Dates: start: 20110427

REACTIONS (1)
  - DYSTONIA [None]
